FAERS Safety Report 7989613-8 (Version None)
Quarter: 2011Q4

REPORT INFORMATION
  Report Type: 
  Country: None (occurrence: None)
  Receive Date: 20111219
  Receipt Date: 20111211
  Transmission Date: 20120403
  Serious: Yes (Hospitalization, Other)
  Sender: FDA-Public Use
  Company Number: JO-JNJFOC-20111205443

PATIENT
  Age: 17 Year
  Sex: Female

DRUGS (3)
  1. CONCERTA [Suspect]
     Indication: ATTENTION DEFICIT/HYPERACTIVITY DISORDER
     Dosage: 36MG X2 ONCE DAILY IN THE MORNING
     Route: 048
  2. ACETAMINOPHEN [Suspect]
     Indication: SELF INJURIOUS BEHAVIOUR
     Route: 048
  3. CONCERTA [Suspect]
     Route: 048

REACTIONS (3)
  - SUICIDAL IDEATION [None]
  - HALLUCINATION [None]
  - OVERDOSE [None]
